FAERS Safety Report 16844995 (Version 1)
Quarter: 2019Q4

REPORT INFORMATION
  Report Type: Spontaneous
  Country: US (occurrence: US)
  Receive Date: 20190924
  Receipt Date: 20190924
  Transmission Date: 20200122
  Serious: No
  Sender: FDA-Public Use
  Company Number: None

PATIENT
  Sex: Female

DRUGS (18)
  1. B-1 [Concomitant]
  2. FOLIC ACID. [Concomitant]
     Active Substance: FOLIC ACID
  3. VITAMIN B-1 [Concomitant]
     Active Substance: THIAMINE HYDROCHLORIDE
  4. HYDROCHLOROT [Concomitant]
     Active Substance: HYDROCHLOROTHIAZIDE
  5. LEVOTHYROXIN [Concomitant]
     Active Substance: LEVOTHYROXINE
  6. SERTRALINE [Concomitant]
     Active Substance: SERTRALINE HYDROCHLORIDE
  7. HUMIRA [Suspect]
     Active Substance: ADALIMUMAB
     Indication: PRODUCT USED FOR UNKNOWN INDICATION
     Dosage: ?          OTHER FREQUENCY:QWK;?
     Route: 058
     Dates: start: 20180118
  8. ATORVASTATIN [Concomitant]
     Active Substance: ATORVASTATIN
  9. LEFLUNOMIDE. [Concomitant]
     Active Substance: LEFLUNOMIDE
  10. NALTREXONE [Concomitant]
     Active Substance: NALTREXONE
  11. VITAMIN B12 [Concomitant]
     Active Substance: CYANOCOBALAMIN
  12. ALBUTEROL. [Concomitant]
     Active Substance: ALBUTEROL
  13. AMLODIPINE [Concomitant]
     Active Substance: AMLODIPINE BESYLATE
  14. DICLOFENAC [Concomitant]
     Active Substance: DICLOFENAC
  15. LISINOPRIL. [Concomitant]
     Active Substance: LISINOPRIL
  16. OMEPRAZOLE. [Concomitant]
     Active Substance: OMEPRAZOLE
  17. METOPROLOL TARTRATE. [Concomitant]
     Active Substance: METOPROLOL TARTRATE
  18. VITAMIN D [Concomitant]
     Active Substance: VITAMIN D NOS

REACTIONS (2)
  - Surgery [None]
  - Therapy cessation [None]
